FAERS Safety Report 17109496 (Version 1)
Quarter: 2019Q4

REPORT INFORMATION
  Report Type: Spontaneous
  Country: FR (occurrence: FR)
  Receive Date: 20191204
  Receipt Date: 20191204
  Transmission Date: 20200122
  Serious: Yes (Death)
  Sender: FDA-Public Use
  Company Number: FR-ROCHE-2481844

PATIENT
  Age: 43 Year
  Sex: Male

DRUGS (6)
  1. SKENAN [Interacting]
     Active Substance: MORPHINE SULFATE
     Indication: GAIT DISTURBANCE
     Route: 048
     Dates: start: 20191014
  2. CODOLIPRANE [Interacting]
     Active Substance: ACETAMINOPHEN\CODEINE PHOSPHATE
     Indication: PRODUCT USED FOR UNKNOWN INDICATION
     Route: 048
     Dates: start: 20191025, end: 20191025
  3. VALIUM [Suspect]
     Active Substance: DIAZEPAM
     Indication: ANXIETY
     Route: 048
  4. METHADONE AP HP [Interacting]
     Active Substance: METHADONE HYDROCHLORIDE
     Indication: DRUG DEPENDENCE
     Route: 048
     Dates: start: 20191022
  5. ISOPTINE [Interacting]
     Active Substance: VERAPAMIL HYDROCHLORIDE
     Indication: PRODUCT USED FOR UNKNOWN INDICATION
     Route: 048
  6. SERETIDE [Concomitant]
     Active Substance: FLUTICASONE PROPIONATE\SALMETEROL XINAFOATE
     Indication: PRODUCT USED FOR UNKNOWN INDICATION
     Route: 055
     Dates: start: 20191014

REACTIONS (3)
  - Cardio-respiratory arrest [Fatal]
  - Bradypnoea [Fatal]
  - Coma [Fatal]

NARRATIVE: CASE EVENT DATE: 20191026
